FAERS Safety Report 20840598 (Version 1)
Quarter: 2022Q2

REPORT INFORMATION
  Report Type: Spontaneous
  Country: IN (occurrence: IN)
  Receive Date: 20220517
  Receipt Date: 20220517
  Transmission Date: 20220720
  Serious: Yes (Hospitalization, Other)
  Sender: FDA-Public Use
  Company Number: IN-LUPIN LIMITED-2022-07071

PATIENT
  Age: 45 Year
  Sex: Male

DRUGS (3)
  1. BUDESONIDE [Suspect]
     Active Substance: BUDESONIDE
     Indication: COVID-19
     Dosage: UNK, TID, BUDESONIDE NEBULIZATION THRICE A DAY
     Dates: start: 202104
  2. DEXAMETHASONE [Suspect]
     Active Substance: DEXAMETHASONE
     Indication: COVID-19
     Dosage: UNK
     Route: 042
     Dates: start: 202104
  3. MEDROL [Suspect]
     Active Substance: METHYLPREDNISOLONE
     Indication: COVID-19
     Dosage: 8 MG, TABLET MEDROL 8 MG FOR A WEEK, WHICH HE DISCONTINUED 5 DAYS FOLLOWING DISCHARGE
     Route: 065
     Dates: start: 202105

REACTIONS (2)
  - Rhinocerebral mucormycosis [Recovered/Resolved]
  - Off label use [Unknown]

NARRATIVE: CASE EVENT DATE: 20210401
